FAERS Safety Report 10738627 (Version 3)
Quarter: 2015Q2

REPORT INFORMATION
  Report Type: Spontaneous
  Country: US (occurrence: US)
  Receive Date: 20150126
  Receipt Date: 20150624
  Transmission Date: 20150821
  Serious: Yes (Hospitalization, Disabling, Other)
  Sender: FDA-Public Use
  Company Number: US-009507513-1108USA00970

PATIENT
  Sex: Male
  Weight: 68.27 kg

DRUGS (5)
  1. FOSAMAX [Suspect]
     Active Substance: ALENDRONATE SODIUM
     Indication: OSTEOPOROSIS
     Dosage: 10 MG, QD
     Route: 048
  2. ZOCOR [Concomitant]
     Active Substance: SIMVASTATIN
     Indication: BLOOD CHOLESTEROL INCREASED
     Dosage: 80 MG, QD
     Route: 048
     Dates: start: 1980
  3. CALCIUM CITRATE [Concomitant]
     Active Substance: CALCIUM CITRATE
     Dosage: 1400 MG, UNK
     Dates: start: 1988
  4. FOSAMAX [Suspect]
     Active Substance: ALENDRONATE SODIUM
     Dosage: 70 MG, QW
     Route: 048
     Dates: start: 2003, end: 201008
  5. ALENDRONATE SODIUM. [Suspect]
     Active Substance: ALENDRONATE SODIUM
     Indication: OSTEOPOROSIS
     Dosage: 70 MG, QW
     Route: 048
     Dates: start: 20071029, end: 20100803

REACTIONS (24)
  - Osteoporosis [Not Recovered/Not Resolved]
  - Muscle spasms [Unknown]
  - Pathological fracture [Unknown]
  - Road traffic accident [Unknown]
  - Sinus arrhythmia [Unknown]
  - Neuropathy peripheral [Unknown]
  - Back pain [Unknown]
  - Hyponatraemia [Unknown]
  - Body temperature increased [Unknown]
  - Pain in extremity [Unknown]
  - Injury [Unknown]
  - Inguinal hernia repair [Unknown]
  - Injury [Unknown]
  - Musculoskeletal pain [Unknown]
  - Low turnover osteopathy [Not Recovered/Not Resolved]
  - Iritis [Recovered/Resolved]
  - Osteoarthritis [Not Recovered/Not Resolved]
  - Spinal fracture [Unknown]
  - Varicose vein [Unknown]
  - Intramedullary rod insertion [Unknown]
  - Hypothyroidism [Not Recovered/Not Resolved]
  - Anaemia [Unknown]
  - Nodule [Unknown]
  - Hiccups [Unknown]

NARRATIVE: CASE EVENT DATE: 20020110
